FAERS Safety Report 17357403 (Version 1)
Quarter: 2020Q1

REPORT INFORMATION
  Report Type: Spontaneous
  Country: FR (occurrence: FR)
  Receive Date: 20200131
  Receipt Date: 20200131
  Transmission Date: 20200409
  Serious: Yes (Life-Threatening, Hospitalization)
  Sender: FDA-Public Use
  Company Number: FR-ANIPHARMA-2020-FR-000033

PATIENT
  Age: 72 Year
  Sex: Female
  Weight: 67 kg

DRUGS (5)
  1. BICALUTAMIDE. [Suspect]
     Active Substance: BICALUTAMIDE
     Indication: PROSTATE CANCER
     Dosage: 50 MG QAM
     Route: 048
     Dates: start: 20191116, end: 20191204
  2. NO MATCH [Concomitant]
     Active Substance: UNSPECIFIED INGREDIENT
     Dosage: 1 DROP TWICE DAILY IN BOTH EYES
     Route: 065
  3. MONOPROST [Concomitant]
     Active Substance: LATANOPROST
     Dosage: 1 DROP EVERY EVENING IN BOTH EYES
     Route: 065
  4. RAMIPRIL. [Concomitant]
     Active Substance: RAMIPRIL
     Dosage: 2.5 MG DAILY
     Route: 065
  5. DECAPEPTYL (ACETATE) [Suspect]
     Active Substance: TRIPTORELIN ACETATE
     Dosage: 22.5 MG Q6MO
     Route: 030
     Dates: start: 20191127

REACTIONS (2)
  - Pulmonary embolism [Not Recovered/Not Resolved]
  - Acute kidney injury [Recovered/Resolved]

NARRATIVE: CASE EVENT DATE: 20191129
